FAERS Safety Report 23112501 (Version 1)
Quarter: 2023Q4

REPORT INFORMATION
  Report Type: Spontaneous
  Country: IL (occurrence: IL)
  Receive Date: 20231027
  Receipt Date: 20231027
  Transmission Date: 20240110
  Serious: Yes (Other)
  Sender: FDA-Public Use
  Company Number: IL-RK PHARMA, INC-20231000059

PATIENT
  Age: 53 Year
  Sex: Male

DRUGS (1)
  1. DICLOFENAC POTASSIUM [Suspect]
     Active Substance: DICLOFENAC POTASSIUM
     Indication: Viral infection
     Dosage: 75 MILLIGRAM, SINGLE
     Route: 030

REACTIONS (1)
  - Haemorrhage intracranial [Recovering/Resolving]
